FAERS Safety Report 8297248-5 (Version None)
Quarter: 2012Q1

REPORT INFORMATION
  Report Type: 
  Country: None (occurrence: None)
  Receive Date: 20120322
  Receipt Date: 20120119
  Transmission Date: 20120608
  Serious: Yes (Hospitalization)
  Sender: FDA-Public Use
  Company Number: UTC-014189

PATIENT
  Age: 74 Year
  Sex: Female
  Weight: 59.09 kg

DRUGS (3)
  1. OXYGEN (OXYGEN) [Concomitant]
  2. LETAIRIS [Concomitant]
  3. TYVASO [Suspect]
     Indication: COR PULMONALE CHRONIC
     Dosage: 216 MCG (54 MCG,4 IN 1 D),INHALATION, 324 MCG (54 MCG,6 IN 1 D), INHALATION
     Route: 055
     Dates: start: 20110128

REACTIONS (2)
  - RESPIRATORY FAILURE [None]
  - INTERSTITIAL LUNG DISEASE [None]
